FAERS Safety Report 6542376-5 (Version None)
Quarter: 2010Q1

REPORT INFORMATION
  Report Type: 
  Country: None (occurrence: None)
  Receive Date: 20100119
  Receipt Date: 20090921
  Transmission Date: 20100710
  Serious: Yes (Other)
  Sender: FDA-Public Use
  Company Number: US-BAYER-200930726NA

PATIENT
  Age: 82 Year
  Sex: Female
  Weight: 68 kg

DRUGS (6)
  1. MAGNEVIST [Suspect]
     Indication: DRUG USE FOR UNKNOWN INDICATION
  2. OMNISCAN [Suspect]
     Indication: NUCLEAR MAGNETIC RESONANCE IMAGING ABDOMINAL
     Dosage: AS USED: 20 ML
     Route: 042
     Dates: start: 20060802, end: 20060802
  3. OMNISCAN [Suspect]
     Dates: start: 20060201, end: 20060201
  4. UNSPECIFIED CONTRAST [Suspect]
     Indication: NUCLEAR MAGNETIC RESONANCE IMAGING ABDOMINAL
     Dates: start: 20060117, end: 20060117
  5. UNSPECIFIED CONTRAST [Suspect]
     Dates: start: 20060112, end: 20060112
  6. UNSPECIFIED CONTRAST [Suspect]
     Dates: start: 20060330, end: 20060330

REACTIONS (1)
  - NEPHROGENIC SYSTEMIC FIBROSIS [None]
